FAERS Safety Report 10268602 (Version 1)
Quarter: 2014Q2

REPORT INFORMATION
  Report Type: Spontaneous
  Country: US (occurrence: None)
  Receive Date: 20140627
  Receipt Date: 20140627
  Transmission Date: 20141212
  Serious: Yes (Disabling)
  Sender: FDA-Public Use
  Company Number: None

PATIENT
  Age: 62 Year
  Sex: Female
  Weight: 106.6 kg

DRUGS (1)
  1. CIPROFLOXACIN 500 MG [Suspect]
     Indication: KIDNEY INFECTION
     Route: 048
     Dates: start: 20140613, end: 20140623

REACTIONS (3)
  - Tendon pain [None]
  - Abasia [None]
  - Insomnia [None]
